FAERS Safety Report 22131959 (Version 1)
Quarter: 2023Q1

REPORT INFORMATION
  Report Type: Spontaneous
  Country: JP (occurrence: JP)
  Receive Date: 20230323
  Receipt Date: 20230323
  Transmission Date: 20230418
  Serious: Yes (Other)
  Sender: FDA-Public Use
  Company Number: JP-MSD-2206JPN000514J

PATIENT
  Sex: Female

DRUGS (7)
  1. KEYTRUDA [Suspect]
     Active Substance: PEMBROLIZUMAB
     Indication: Endometrial cancer stage I
     Dosage: 200 MILLIGRAM, Q3W
     Route: 041
     Dates: start: 20220303, end: 20220324
  2. KEYTRUDA [Suspect]
     Active Substance: PEMBROLIZUMAB
     Dosage: 200 MILLIGRAM
     Route: 041
     Dates: start: 20220415, end: 2022
  3. KEYTRUDA [Suspect]
     Active Substance: PEMBROLIZUMAB
     Dosage: 200 MILLIGRAM, Q3W
     Route: 041
     Dates: start: 202210
  4. LENVATINIB MESYLATE [Suspect]
     Active Substance: LENVATINIB MESYLATE
     Indication: Endometrial cancer stage I
     Dosage: 10 MILLIGRAM
     Route: 048
     Dates: start: 20220303, end: 20220401
  5. LENVATINIB MESYLATE [Suspect]
     Active Substance: LENVATINIB MESYLATE
     Dosage: 10 MILLIGRAM
     Route: 048
     Dates: start: 20220407, end: 20220415
  6. LENVATINIB MESYLATE [Suspect]
     Active Substance: LENVATINIB MESYLATE
     Dosage: 4 MILLIGRAM, QD
     Route: 048
     Dates: start: 2022, end: 202206
  7. LENVATINIB MESYLATE [Suspect]
     Active Substance: LENVATINIB MESYLATE
     Dosage: UNK
     Route: 048
     Dates: start: 202210

REACTIONS (8)
  - Malignant neoplasm progression [Recovering/Resolving]
  - Cardiac failure acute [Unknown]
  - Pulmonary sarcoidosis [Unknown]
  - Hypothyroidism [Unknown]
  - Adrenocorticotropic hormone deficiency [Recovered/Resolved]
  - Herpes zoster [Unknown]
  - Diarrhoea [Unknown]
  - Palmar-plantar erythrodysaesthesia syndrome [Unknown]

NARRATIVE: CASE EVENT DATE: 20220101
